FAERS Safety Report 12942860 (Version 1)
Quarter: 2016Q4

REPORT INFORMATION
  Report Type: Spontaneous
  Country: US (occurrence: US)
  Receive Date: 20161115
  Receipt Date: 20161115
  Transmission Date: 20170207
  Serious: No
  Sender: FDA-Public Use
  Company Number: US-LEO PHARMA-244708

PATIENT
  Age: 50 Year
  Sex: Female

DRUGS (1)
  1. PICATO [Suspect]
     Active Substance: INGENOL MEBUTATE
     Indication: PRECANCEROUS SKIN LESION
     Route: 061
     Dates: start: 20161110

REACTIONS (5)
  - Application site pain [Not Recovered/Not Resolved]
  - Ocular hyperaemia [Not Recovered/Not Resolved]
  - Accidental exposure to product [Unknown]
  - Eye irritation [Not Recovered/Not Resolved]
  - Lacrimation increased [Not Recovered/Not Resolved]
